FAERS Safety Report 6107162-9 (Version None)
Quarter: 2009Q1

REPORT INFORMATION
  Report Type: 
  Country: None (occurrence: None)
  Receive Date: 20090305
  Receipt Date: 20090305
  Transmission Date: 20090719
  Serious: Yes (Death)
  Sender: FDA-Public Use
  Company Number: None

PATIENT
  Age: 17 Year
  Sex: Male
  Weight: 74.8435 kg

DRUGS (1)
  1. SERTRALINE [Suspect]
     Dosage: 50 MG 1 X DAY ORAL
     Route: 048
     Dates: start: 20081120, end: 20081210

REACTIONS (1)
  - COMPLETED SUICIDE [None]
